FAERS Safety Report 6280610-X (Version None)
Quarter: 2009Q3

REPORT INFORMATION
  Report Type: 
  Country: None (occurrence: None)
  Receive Date: 20090724
  Receipt Date: 20080926
  Transmission Date: 20100115
  Serious: Yes (Hospitalization)
  Sender: FDA-Public Use
  Company Number: A0750334A

PATIENT
  Age: 59 Year
  Sex: Female
  Weight: 83.2 kg

DRUGS (1)
  1. AVANDIA [Suspect]
     Dosage: 4MG PER DAY
     Route: 065
     Dates: start: 20051101, end: 20060301

REACTIONS (1)
  - CARDIAC FAILURE CONGESTIVE [None]
